FAERS Safety Report 5460369-6 (Version None)
Quarter: 2007Q3

REPORT INFORMATION
  Report Type: 
  Country: None (occurrence: None)
  Receive Date: 20070919
  Receipt Date: 20070705
  Transmission Date: 20080115
  Serious: No
  Sender: FDA-Public Use
  Company Number: US-ASTRAZENECA-2007UW15744

PATIENT
  Age: 45 Year
  Sex: Male
  Weight: 127 kg

DRUGS (3)
  1. SEROQUEL [Suspect]
     Indication: BIPOLAR DISORDER
     Route: 048
     Dates: start: 20070201
  2. TOPAMAX [Concomitant]
  3. WELLBUTRIN [Concomitant]

REACTIONS (4)
  - ILL-DEFINED DISORDER [None]
  - JAW DISORDER [None]
  - MUSCLE SPASMS [None]
  - PARAESTHESIA ORAL [None]
